FAERS Safety Report 6983148 (Version 2)
Quarter: 2013Q3

REPORT INFORMATION
  Report Type: Spontaneous
  Country: US (occurrence: US)
  Receive Date: 20090430
  Receipt Date: 20130829
  Transmission Date: 20140515
  Serious: No
  Sender: FDA-Public Use
  Company Number: US-ASTRAZENECA-2008UW28140

PATIENT
  Age: 22686 Day
  Sex: Female

DRUGS (1)
  1. NEXIUM ORAL [Suspect]
     Route: 048
     Dates: start: 20060718

REACTIONS (4)
  - Diabetes mellitus [Unknown]
  - Blood pressure increased [Unknown]
  - Feeling abnormal [Unknown]
  - Chest discomfort [Unknown]
